FAERS Safety Report 15057126 (Version 1)
Quarter: 2018Q2

REPORT INFORMATION
  Report Type: Spontaneous
  Country: US (occurrence: US)
  Receive Date: 20180604
  Receipt Date: 20180604
  Transmission Date: 20180711
  Serious: Yes (Other)
  Sender: FDA-Public Use
  Company Number: None

PATIENT
  Age: 58 Year
  Sex: Male
  Weight: 111.5 kg

DRUGS (5)
  1. VALACYCLOVIR 500 MG [Concomitant]
     Active Substance: VALACYCLOVIR HYDROCHLORIDE
  2. DOXYCYCLINE. [Concomitant]
     Active Substance: DOXYCYCLINE
  3. IMBRUVICA [Suspect]
     Active Substance: IBRUTINIB
     Indication: CHRONIC LYMPHOCYTIC LEUKAEMIA
     Route: 048
     Dates: start: 20180519, end: 20180522
  4. VITAMIN C [Concomitant]
     Active Substance: ASCORBIC ACID
  5. B COMPLEX VITAMIN [Concomitant]

REACTIONS (5)
  - Asthenia [None]
  - Neck pain [None]
  - Product formulation issue [None]
  - Dizziness [None]
  - Headache [None]

NARRATIVE: CASE EVENT DATE: 20180522
